FAERS Safety Report 23865136 (Version 1)
Quarter: 2024Q2

REPORT INFORMATION
  Report Type: Spontaneous
  Country: US (occurrence: US)
  Receive Date: 20240517
  Receipt Date: 20240517
  Transmission Date: 20240716
  Serious: Yes (Hospitalization, Other)
  Sender: FDA-Public Use
  Company Number: US-MLMSERVICE-20220513-3555771-2

PATIENT
  Age: 57 Year
  Sex: Female

DRUGS (5)
  1. TACROLIMUS [Suspect]
     Active Substance: TACROLIMUS
     Indication: Prophylaxis against transplant rejection
     Dosage: TAC 7 MG IN AM /6 MG IN PM
  2. TACROLIMUS [Suspect]
     Active Substance: TACROLIMUS
     Indication: Immunosuppressant drug therapy
  3. PREDNISONE [Concomitant]
     Active Substance: PREDNISONE
     Indication: Prophylaxis against transplant rejection
     Dosage: UNK
  4. PREDNISONE [Concomitant]
     Active Substance: PREDNISONE
     Indication: Immunosuppressant drug therapy
  5. MYCOPHENOLATE MOFETIL [Concomitant]
     Active Substance: MYCOPHENOLATE MOFETIL
     Indication: Immunosuppressant drug therapy
     Dosage: 180 MILLIGRAM, BID

REACTIONS (3)
  - Diabetic ketoacidosis [Recovered/Resolved]
  - Immunosuppressant drug level increased [Recovered/Resolved]
  - Off label use [Unknown]
